FAERS Safety Report 22651632 (Version 1)
Quarter: 2023Q2

REPORT INFORMATION
  Report Type: Spontaneous
  Country: CA (occurrence: CA)
  Receive Date: 20230628
  Receipt Date: 20230628
  Transmission Date: 20230721
  Serious: Yes (Other)
  Sender: FDA-Public Use
  Company Number: CA-MYLANLABS-2019M1132176

PATIENT
  Age: 54 Year
  Sex: Male

DRUGS (23)
  1. VALPROIC ACID [Interacting]
     Active Substance: VALPROIC ACID
     Indication: Product used for unknown indication
     Dosage: UNK
     Route: 065
  2. ZOPICLONE [Interacting]
     Active Substance: ZOPICLONE
     Indication: Bipolar disorder
     Dosage: UNK
     Route: 048
  3. ZOPICLONE [Interacting]
     Active Substance: ZOPICLONE
     Indication: Depression
  4. ATAZANAVIR SULFATE [Interacting]
     Active Substance: ATAZANAVIR SULFATE
     Indication: HIV infection
     Dosage: UNK
     Route: 065
  5. BUPROPION HYDROCHLORIDE [Interacting]
     Active Substance: BUPROPION HYDROCHLORIDE
     Indication: Depression
     Dosage: UNK
     Route: 048
  6. CLONAZEPAM [Interacting]
     Active Substance: CLONAZEPAM
     Indication: Psychotic disorder
     Dosage: UNK
     Route: 065
  7. CLONAZEPAM [Interacting]
     Active Substance: CLONAZEPAM
     Indication: Depression
     Dosage: UNK
     Route: 048
  8. KALETRA [Interacting]
     Active Substance: LOPINAVIR\RITONAVIR
     Indication: Product used for unknown indication
     Dosage: UNK
     Route: 048
  9. LAMIVUDINE [Interacting]
     Active Substance: LAMIVUDINE
     Indication: Product used for unknown indication
     Dosage: UNK
     Route: 065
  10. SUSTIVA [Interacting]
     Active Substance: EFAVIRENZ
     Indication: Product used for unknown indication
     Dosage: 400 MILLIGRAM, BID
     Route: 048
  11. QUETIAPINE FUMARATE [Interacting]
     Active Substance: QUETIAPINE FUMARATE
     Indication: Bipolar disorder
     Dosage: UNK
     Route: 065
  12. QUETIAPINE FUMARATE [Interacting]
     Active Substance: QUETIAPINE FUMARATE
     Indication: Depression
     Dosage: UNK
     Route: 048
  13. RALTEGRAVIR POTASSIUM [Interacting]
     Active Substance: RALTEGRAVIR POTASSIUM
     Indication: HIV infection
     Dosage: 400 MILLILITER, QD
     Route: 048
  14. RALTEGRAVIR POTASSIUM [Interacting]
     Active Substance: RALTEGRAVIR POTASSIUM
     Dosage: 400 MILLIGRAM, BID
     Route: 065
  15. SERTRALINE HYDROCHLORIDE [Suspect]
     Active Substance: SERTRALINE HYDROCHLORIDE
     Indication: Bipolar disorder
     Dosage: UNK
     Route: 065
  16. SERTRALINE HYDROCHLORIDE [Suspect]
     Active Substance: SERTRALINE HYDROCHLORIDE
     Indication: Depression
  17. VALPROATE SODIUM [Suspect]
     Active Substance: VALPROATE SODIUM
     Indication: Depression
     Dosage: UNK
     Route: 065
  18. ENFUVIRTIDE [Concomitant]
     Active Substance: ENFUVIRTIDE
     Dosage: UNK
     Route: 065
  19. ENFUVIRTIDE [Concomitant]
     Active Substance: ENFUVIRTIDE
     Dosage: UNK
     Route: 065
  20. EFAVIRENZ [Concomitant]
     Active Substance: EFAVIRENZ
     Indication: HIV infection
     Dosage: UNK
     Route: 065
  21. ATAZANAVIR SULFATE [Concomitant]
     Active Substance: ATAZANAVIR SULFATE
     Dosage: UNK
     Route: 065
  22. LAMIVUDINE [Concomitant]
     Active Substance: LAMIVUDINE
     Indication: HIV infection
     Dosage: UNK
     Route: 065
  23. LOPINAVIR\RITONAVIR [Concomitant]
     Active Substance: LOPINAVIR\RITONAVIR
     Indication: HIV infection
     Dosage: UNK
     Route: 065

REACTIONS (3)
  - Depression [Unknown]
  - Labelled drug-drug interaction medication error [Recovered/Resolved]
  - Psychiatric decompensation [Recovered/Resolved]
